FAERS Safety Report 17202899 (Version 4)
Quarter: 2020Q1

REPORT INFORMATION
  Report Type: Spontaneous
  Country: PR (occurrence: PR)
  Receive Date: 20191226
  Receipt Date: 20200228
  Transmission Date: 20200409
  Serious: No
  Sender: FDA-Public Use
  Company Number: PR-PFIZER INC-2019548987

PATIENT
  Age: 11 Year
  Sex: Male
  Weight: 49.89 kg

DRUGS (1)
  1. GENOTROPIN [Suspect]
     Active Substance: SOMATROPIN
     Dosage: 3.4 MG, UNK (3.4 MG ONCE IN A DAY FOR SIX DAYS STRAIGHT)
     Route: 030
     Dates: start: 20190303

REACTIONS (5)
  - Product dose omission [Unknown]
  - Device physical property issue [Unknown]
  - Incorrect dosage administered [Unknown]
  - Device leakage [Unknown]
  - Arthralgia [Unknown]
